FAERS Safety Report 9181002 (Version 1)
Quarter: 2013Q1

REPORT INFORMATION
  Report Type: Spontaneous
  Country: AR (occurrence: AR)
  Receive Date: 20130322
  Receipt Date: 20130322
  Transmission Date: 20140127
  Serious: Yes (Other)
  Sender: FDA-Public Use
  Company Number: PHHY2013AR016753

PATIENT
  Age: 73 Year
  Sex: Male

DRUGS (3)
  1. DIOVAN [Suspect]
     Indication: HYPERTENSION
     Dosage: 160 MG, UNK
     Dates: start: 2010
  2. DIOVAN [Suspect]
     Dosage: 80 MG, UNK
     Dates: start: 20130206
  3. EXFORGE [Suspect]
     Dosage: UNK UKN, (160/12.5 MG)

REACTIONS (3)
  - Peripheral artery thrombosis [Unknown]
  - Vascular calcification [Unknown]
  - Bacterial infection [Unknown]
